FAERS Safety Report 8059402-7 (Version None)
Quarter: 2012Q1

REPORT INFORMATION
  Report Type: 
  Country: None (occurrence: None)
  Receive Date: 20120120
  Receipt Date: 20120117
  Transmission Date: 20120608
  Serious: Yes (Death, Other)
  Sender: FDA-Public Use
  Company Number: AU-ROCHE-1027412

PATIENT
  Sex: Female
  Weight: 57 kg

DRUGS (7)
  1. CYCLIZINE [Concomitant]
     Route: 048
  2. VEMURAFENIB [Suspect]
     Dates: end: 20111207
  3. PREGABALIN [Concomitant]
     Route: 048
  4. HALOPERIDOL [Concomitant]
     Route: 048
  5. VEMURAFENIB [Suspect]
     Indication: MALIGNANT MELANOMA
     Dates: start: 20111019, end: 20111117
  6. HYDROMORPHONE HCL [Concomitant]
     Route: 048
  7. FENTANYL-100 [Concomitant]
     Route: 061

REACTIONS (5)
  - FATIGUE [None]
  - NAUSEA [None]
  - MALAISE [None]
  - DEATH [None]
  - RASH [None]
